FAERS Safety Report 8364473-4 (Version None)
Quarter: 2012Q2

REPORT INFORMATION
  Report Type: 
  Country: None (occurrence: None)
  Receive Date: 20120516
  Receipt Date: 20120514
  Transmission Date: 20120825
  Serious: Yes (Death, Life-Threatening, Hospitalization)
  Sender: FDA-Public Use
  Company Number: US-GLAXOSMITHKLINE-Z0014386C

PATIENT
  Age: 72 Year
  Sex: Male

DRUGS (5)
  1. OFATUMUMAB [Suspect]
     Indication: B-CELL LYMPHOMA
     Dosage: 1000MG CYCLIC
     Route: 042
     Dates: start: 20110921
  2. BENDAMUSTINE HYDROCHLORIDE [Suspect]
     Indication: B-CELL LYMPHOMA
     Dosage: 90MGM2 CYCLIC
     Route: 042
     Dates: start: 20110922
  3. ALBUMIN (HUMAN) [Concomitant]
     Indication: HYPOALBUMINAEMIA
     Dosage: 250CC THREE TIMES PER DAY
     Route: 042
     Dates: start: 20120425, end: 20120426
  4. PLATELETS [Concomitant]
     Indication: THROMBOCYTOPENIA
     Dosage: 6UNIT SINGLE DOSE
     Route: 042
     Dates: start: 20120504, end: 20120504
  5. PACKED RED BLOOD CELLS [Concomitant]
     Indication: ANAEMIA
     Dosage: 2UNIT SINGLE DOSE
     Route: 042
     Dates: start: 20120429, end: 20120429

REACTIONS (1)
  - PNEUMONIA [None]
